FAERS Safety Report 5262462-X (Version None)
Quarter: 2007Q1

REPORT INFORMATION
  Report Type: 
  Country: None (occurrence: None)
  Receive Date: 20070312
  Receipt Date: 20070306
  Transmission Date: 20070707
  Serious: Yes (Death, Hospitalization, Other)
  Sender: FDA-Public Use
  Company Number: US-JNJFOC-20070301787

PATIENT
  Age: 39 Year
  Sex: Female

DRUGS (4)
  1. DURAGESIC-100 [Suspect]
     Indication: PROCEDURAL PAIN
     Route: 062
  2. TORADOL [Concomitant]
     Route: 065
  3. VICODIN [Concomitant]
     Route: 065
  4. ZOFRAN [Concomitant]
     Route: 065

REACTIONS (1)
  - CARDIAC ARREST [None]
